FAERS Safety Report 19472914 (Version 1)
Quarter: 2021Q2

REPORT INFORMATION
  Report Type: Spontaneous
  Country: US (occurrence: US)
  Receive Date: 20210629
  Receipt Date: 20210629
  Transmission Date: 20210717
  Serious: Yes (Other)
  Sender: FDA-Public Use
  Company Number: US-ASTRAZENECA-2021A550685

PATIENT
  Age: 72 Year
  Sex: Female
  Weight: 87.1 kg

DRUGS (6)
  1. COVID VACCINE [Concomitant]
     Dates: start: 202101
  2. VERAPAMIL [Concomitant]
     Active Substance: VERAPAMIL HYDROCHLORIDE
  3. METFORMIN [Concomitant]
     Active Substance: METFORMIN HYDROCHLORIDE
  4. BYDUREON BCISE [Suspect]
     Active Substance: EXENATIDE
     Indication: TYPE 2 DIABETES MELLITUS
     Route: 058
  5. ATORVASTATIN [Concomitant]
     Active Substance: ATORVASTATIN
     Indication: MYOCARDIAL INFARCTION
  6. FENOBIRATE [Concomitant]
     Indication: BLOOD TRIGLYCERIDES

REACTIONS (6)
  - Weight decreased [Unknown]
  - Chills [Unknown]
  - Heart rate abnormal [Unknown]
  - Wrong technique in device usage process [Unknown]
  - Pain [Unknown]
  - Myocardial infarction [Unknown]

NARRATIVE: CASE EVENT DATE: 2016
